FAERS Safety Report 14425573 (Version 1)
Quarter: 2018Q1

REPORT INFORMATION
  Report Type: Spontaneous
  Country: US (occurrence: US)
  Receive Date: 20180122
  Receipt Date: 20180122
  Transmission Date: 20180509
  Serious: Yes (Other)
  Sender: FDA-Public Use
  Company Number: None

PATIENT
  Age: 2 Year
  Sex: Female
  Weight: 14.4 kg

DRUGS (10)
  1. NIGHTTIME COLD N COUGH 4 KIDS [Suspect]
     Active Substance: HOMEOPATHICS
     Indication: INSOMNIA
     Dosage: QUANTITY:1 TEASPOON(S);?
     Route: 048
  2. NIGHTTIME COLD N COUGH 4 KIDS [Suspect]
     Active Substance: HOMEOPATHICS
     Indication: RHINORRHOEA
     Dosage: QUANTITY:1 TEASPOON(S);?
     Route: 048
  3. NIGHTTIME COLD N COUGH 4 KIDS [Suspect]
     Active Substance: HOMEOPATHICS
     Indication: COUGH
     Dosage: QUANTITY:1 TEASPOON(S);?
     Route: 048
  4. PREDNISOLONE. [Concomitant]
     Active Substance: PREDNISOLONE
  5. COLD N COUGH 4 KIDS [Suspect]
     Active Substance: HOMEOPATHICS
     Indication: COUGH
     Dosage: QUANTITY:1 TEASPOON(S);?
     Route: 048
  6. NIGHTTIME COLD N COUGH 4 KIDS [Suspect]
     Active Substance: HOMEOPATHICS
     Indication: SNEEZING
     Dosage: QUANTITY:1 TEASPOON(S);?
     Route: 048
  7. CHILDRENS TYLENOL [Concomitant]
     Active Substance: ACETAMINOPHEN
  8. COLD N COUGH 4 KIDS [Suspect]
     Active Substance: HOMEOPATHICS
     Indication: SNEEZING
     Dosage: QUANTITY:1 TEASPOON(S);?
     Route: 048
  9. COLD N COUGH 4 KIDS [Suspect]
     Active Substance: HOMEOPATHICS
     Indication: RHINORRHOEA
     Dosage: QUANTITY:1 TEASPOON(S);?
     Route: 048
  10. BENADRYL [Concomitant]
     Active Substance: DIPHENHYDRAMINE HYDROCHLORIDE

REACTIONS (2)
  - Urticaria [None]
  - Hypersensitivity [None]

NARRATIVE: CASE EVENT DATE: 20180121
